FAERS Safety Report 12855252 (Version 2)
Quarter: 2016Q4

REPORT INFORMATION
  Report Type: Spontaneous
  Country: AR (occurrence: AR)
  Receive Date: 20161017
  Receipt Date: 20161208
  Transmission Date: 20170207
  Serious: Yes (Other)
  Sender: FDA-Public Use
  Company Number: AR-ABBVIE-16P-007-1754949-00

PATIENT
  Age: 45 Year
  Sex: Male
  Weight: 62 kg

DRUGS (4)
  1. TACROLIMUS. [Interacting]
     Active Substance: TACROLIMUS
     Route: 048
     Dates: start: 20160930
  2. RIBAVIRIN. [Concomitant]
     Active Substance: RIBAVIRIN
     Indication: HEPATITIS C
  3. TACROLIMUS. [Interacting]
     Active Substance: TACROLIMUS
     Indication: RENAL TRANSPLANT
     Route: 048
     Dates: start: 20160926
  4. VIEKIRA PAK [Suspect]
     Active Substance: DASABUVIR\OMBITASVIR\PARITAPREVIR\RITONAVIR
     Indication: HEPATITIS C
     Route: 048
     Dates: start: 20160922, end: 20160926

REACTIONS (5)
  - Headache [Recovered/Resolved]
  - Tremor [Recovered/Resolved]
  - Neurotoxicity [Recovered/Resolved]
  - Drug interaction [Recovered/Resolved]
  - Ocular hyperaemia [Recovered/Resolved]

NARRATIVE: CASE EVENT DATE: 20160924
